FAERS Safety Report 17765273 (Version 1)
Quarter: 2020Q2

REPORT INFORMATION
  Report Type: Spontaneous
  Country: US (occurrence: US)
  Receive Date: 20200511
  Receipt Date: 20200511
  Transmission Date: 20200714
  Serious: No
  Sender: FDA-Public Use
  Company Number: US-PFIZER INC-2020184989

PATIENT
  Sex: Male

DRUGS (1)
  1. VIAGRA [Suspect]
     Active Substance: SILDENAFIL CITRATE
     Indication: DEPRESSED LEVEL OF CONSCIOUSNESS
     Dosage: 50 MG, AS NEEDED
     Route: 048

REACTIONS (4)
  - Penile odour [Not Recovered/Not Resolved]
  - Muscle tightness [Unknown]
  - Discomfort [Unknown]
  - Penile discharge [Recovering/Resolving]
